FAERS Safety Report 9982716 (Version 1)
Quarter: 2014Q1

REPORT INFORMATION
  Report Type: Report from Study
  Country: US (occurrence: US)
  Receive Date: 20140307
  Receipt Date: 20140307
  Transmission Date: 20141002
  Serious: No
  Sender: FDA-Public Use
  Company Number: US-ABBVIE-13P-163-1180894-00

PATIENT
  Age: 51 Year
  Sex: Female

DRUGS (10)
  1. HUMIRA [Suspect]
     Indication: PSORIATIC ARTHROPATHY
     Dates: start: 201308
  2. METHOTREXATE [Suspect]
     Indication: PRODUCT USED FOR UNKNOWN INDICATION
  3. METHOTREXATE [Suspect]
     Dates: start: 201312
  4. FOLIC ACID [Concomitant]
     Indication: PSORIATIC ARTHROPATHY
  5. NAPROSYN [Concomitant]
     Indication: PSORIATIC ARTHROPATHY
  6. PROTOPIC [Concomitant]
     Indication: PSORIASIS
  7. BENZOCAINE [Concomitant]
     Indication: PSORIASIS
  8. BETAMETHASONE [Concomitant]
     Indication: PSORIASIS
     Dosage: LOTION
  9. TRAZODONE [Concomitant]
     Indication: INSOMNIA
  10. PREDNISONE [Concomitant]
     Indication: PRODUCT USED FOR UNKNOWN INDICATION
     Dosage: TAPERING

REACTIONS (4)
  - Dental caries [Unknown]
  - Injection site bruising [Not Recovered/Not Resolved]
  - Injection site pain [Not Recovered/Not Resolved]
  - Hepatic enzyme increased [Recovered/Resolved]
